FAERS Safety Report 6301329-2 (Version None)
Quarter: 2009Q3

REPORT INFORMATION
  Report Type: 
  Country: None (occurrence: None)
  Receive Date: 20090807
  Receipt Date: 20090728
  Transmission Date: 20100115
  Serious: Yes (Other)
  Sender: FDA-Public Use
  Company Number: JP-PFIZER INC-2009243215

PATIENT
  Age: 73 Year

DRUGS (1)
  1. LINEZOLID [Suspect]
     Dosage: UNK
     Route: 048
     Dates: start: 20081001

REACTIONS (1)
  - PLATELET COUNT DECREASED [None]
